FAERS Safety Report 25216410 (Version 2)
Quarter: 2025Q2

REPORT INFORMATION
  Report Type: Spontaneous
  Country: US (occurrence: US)
  Receive Date: 20250418
  Receipt Date: 20250419
  Transmission Date: 20250716
  Serious: No
  Sender: ROCHE
  Company Number: US-ROCHE-10000252162

PATIENT
  Age: 27 Year
  Sex: Female
  Weight: 98.43 kg

DRUGS (1)
  1. XOLAIR [Suspect]
     Active Substance: OMALIZUMAB
     Indication: Urticaria chronic
     Route: 058
     Dates: start: 202403

REACTIONS (6)
  - Product dose omission issue [Unknown]
  - Device issue [Unknown]
  - Product complaint [Unknown]
  - Drug delivery system malfunction [Unknown]
  - No adverse event [Unknown]
  - Device defective [Unknown]

NARRATIVE: CASE EVENT DATE: 20250403
